FAERS Safety Report 4588811-3 (Version None)
Quarter: 2005Q1

REPORT INFORMATION
  Report Type: 
  Country: None (occurrence: None)
  Receive Date: 20050216
  Receipt Date: 20050203
  Transmission Date: 20050727
  Serious: Yes (Hospitalization)
  Sender: FDA-Public Use
  Company Number: 2005025716

PATIENT
  Sex: Male

DRUGS (5)
  1. GEODON [Suspect]
     Indication: ILL-DEFINED DISORDER
     Dosage: 20 MG (2 IN 1 D), ORAL
     Route: 048
  2. VALPROATE SODIUM [Suspect]
     Indication: ILL-DEFINED DISORDER
     Dosage: SEE IMAGE
     Route: 048
  3. LEVOTHYROXINE SODIUM [Concomitant]
  4. PROPRANOLOL HYDROCHLORIDE [Concomitant]
  5. CARBIDOPA/ENTACAPONE/LEVODOPA CARBIDOPA, ENTACAPONE, LEVODOPA) [Concomitant]

REACTIONS (2)
  - DIFFICULTY IN WALKING [None]
  - TREMOR [None]
